FAERS Safety Report 17266812 (Version 1)
Quarter: 2020Q1

REPORT INFORMATION
  Report Type: Spontaneous
  Country: CA (occurrence: CA)
  Receive Date: 20200114
  Receipt Date: 20200114
  Transmission Date: 20200409
  Serious: Yes (Other)
  Sender: FDA-Public Use
  Company Number: CA-PFIZER INC-2020009201

PATIENT
  Age: 65 Year
  Sex: Female

DRUGS (2)
  1. TYLENOL [Suspect]
     Active Substance: ACETAMINOPHEN
     Dosage: UNK
  2. GD-AZITHROMYCIN [Suspect]
     Active Substance: AZITHROMYCIN
     Indication: INFECTION
     Dosage: 250 MG, UNK

REACTIONS (5)
  - Intentional product use issue [Unknown]
  - Abdominal pain lower [Unknown]
  - Cough [Unknown]
  - Aphonia [Unknown]
  - Vomiting [Unknown]
